FAERS Safety Report 11052069 (Version 1)
Quarter: 2015Q2

REPORT INFORMATION
  Report Type: Report from Study
  Country: US (occurrence: US)
  Receive Date: 20150421
  Receipt Date: 20150421
  Transmission Date: 20150821
  Serious: Yes (Other)
  Sender: FDA-Public Use
  Company Number: US-ABBVIE-15K-163-1377496-00

PATIENT
  Age: 72 Year
  Sex: Female

DRUGS (1)
  1. HUMIRA [Suspect]
     Active Substance: ADALIMUMAB
     Indication: CROHN^S DISEASE
     Route: 065
     Dates: start: 20150108

REACTIONS (7)
  - Mammogram abnormal [Unknown]
  - Painful defaecation [Unknown]
  - Diarrhoea [Recovered/Resolved]
  - Therapeutic response unexpected [Recovered/Resolved]
  - Meniscus injury [Not Recovered/Not Resolved]
  - Skin disorder [Recovered/Resolved]
  - Breast cancer female [Unknown]

NARRATIVE: CASE EVENT DATE: 2015
